FAERS Safety Report 9861694 (Version 2)
Quarter: 2014Q1

REPORT INFORMATION
  Report Type: Spontaneous
  Country: US (occurrence: None)
  Receive Date: 20140130
  Receipt Date: 20140306
  Transmission Date: 20141002
  Serious: Yes (Hospitalization)
  Sender: FDA-Public Use
  Company Number: SYM-2014-15275

PATIENT
  Age: 56 Year
  Sex: Female

DRUGS (9)
  1. WELLBUTRIN (BUPROPION HYDROCHLORIDE) [Suspect]
     Indication: DEPRESSION
     Dosage: 150 MG, 2 IN 1 D, ORAL
     Route: 048
  2. LASIX (FUROSEMIDE) (FUROSEMIDE) [Concomitant]
  3. METOPROLOL TARTRATE (METOPROLOL TARTRATE0 (METOPROLOL TARTRATE) [Concomitant]
  4. PARA FORTE (PARAFON) (CHLORZOXAZONE, PARACETAMOL) [Concomitant]
  5. ZOLOFT (SERTRALINE HYDROCHLORIDE) (SERTRALINE HYDROCHLORIDE) [Concomitant]
  6. GABAPENTIN (GABAPENTIN) (GABAPENTIN) [Concomitant]
  7. PROTONIX (PANTOPRAZOLE SODIUM SESQUIHYDRATE) (PANTOPRAZOLE SODIUM SESQUIHYDRATE) [Concomitant]
  8. MOBIC (MELOXICAM) (MELOXICAM) [Concomitant]
  9. TRAZODONE (TRAZODONE) (TRAZODONE) [Concomitant]

REACTIONS (1)
  - Joint dislocation [None]
